FAERS Safety Report 6063944-3 (Version None)
Quarter: 2009Q1

REPORT INFORMATION
  Report Type: 
  Country: None (occurrence: None)
  Receive Date: 20090204
  Receipt Date: 20090126
  Transmission Date: 20090719
  Serious: Yes (Other)
  Sender: FDA-Public Use
  Company Number: PHHY2008FR33567

PATIENT
  Sex: Male

DRUGS (6)
  1. EXELON [Suspect]
     Indication: DEMENTIA ALZHEIMER'S TYPE
     Dosage: 4.6 MG/24 H, 1 PATCH QD
     Route: 062
     Dates: start: 20080823, end: 20081228
  2. PREVISCAN [Concomitant]
     Indication: PULMONARY EMBOLISM
     Dosage: 1 DF, QD
     Route: 048
     Dates: start: 20080701
  3. ESOMEPRAZOLE MAGNESIUM [Concomitant]
     Indication: GASTRITIS
     Dosage: 1 DF, QD
     Route: 048
  4. ZOPICLONE [Concomitant]
     Indication: INSOMNIA
     Dosage: 7.5 MG, QD
     Route: 048
  5. SEROPRAM [Concomitant]
     Indication: DEPRESSION
     Dosage: 10 MG, QD
     Route: 048
  6. NULYTELY [Concomitant]
     Indication: CONSTIPATION
     Dosage: 1 DF, QD
     Route: 048

REACTIONS (13)
  - APPLICATION SITE REACTION [None]
  - BLISTER [None]
  - DERMATITIS [None]
  - DERMATITIS BULLOUS [None]
  - EOSINOPHIL COUNT INCREASED [None]
  - EXCORIATION [None]
  - HYPERPLASIA [None]
  - NIKOLSKY'S SIGN [None]
  - PRURITUS [None]
  - PYREXIA [None]
  - RASH PAPULAR [None]
  - SKIN LESION [None]
  - TOXIC SKIN ERUPTION [None]
